FAERS Safety Report 24783036 (Version 1)
Quarter: 2024Q4

REPORT INFORMATION
  Report Type: Report from Study
  Country: US (occurrence: US)
  Receive Date: 20241227
  Receipt Date: 20241227
  Transmission Date: 20250115
  Serious: Yes (Hospitalization, Other)
  Sender: ACADIA PHARMACEUTICALS
  Company Number: US-ACADIA PHARMACEUTICALS INC.-ACA-2024-PIM-008730

PATIENT
  Age: 70 Year
  Sex: Male

DRUGS (12)
  1. NUPLAZID [Suspect]
     Active Substance: PIMAVANSERIN TARTRATE
     Indication: Hallucination
     Dosage: 34 MILLIGRAM, QD
     Route: 048
     Dates: start: 20240426
  2. NUPLAZID [Suspect]
     Active Substance: PIMAVANSERIN TARTRATE
     Indication: Dementia with Lewy bodies
  3. TAMSULOSIN [Concomitant]
     Active Substance: TAMSULOSIN
  4. MEMANTINE [Concomitant]
     Active Substance: MEMANTINE
  5. FINASTERIDE [Concomitant]
     Active Substance: FINASTERIDE
  6. HYDROCHLOROTHIAZIDE [Concomitant]
     Active Substance: HYDROCHLOROTHIAZIDE
  7. ASPIRIN [Concomitant]
     Active Substance: ASPIRIN
  8. MONTELUKAST [Concomitant]
     Active Substance: MONTELUKAST SODIUM
  9. FLUTICASONE [Concomitant]
     Active Substance: FLUTICASONE
  10. AZELASTINE [Concomitant]
     Active Substance: AZELASTINE
  11. XYZAL [Concomitant]
     Active Substance: LEVOCETIRIZINE DIHYDROCHLORIDE
  12. ATORVASTATIN [Concomitant]
     Active Substance: ATORVASTATIN

REACTIONS (4)
  - Seizure [Unknown]
  - Urinary tract infection [Unknown]
  - Stress [Unknown]
  - Off label use [Not Recovered/Not Resolved]

NARRATIVE: CASE EVENT DATE: 20240426
